FAERS Safety Report 24772141 (Version 2)
Quarter: 2024Q4

REPORT INFORMATION
  Report Type: Spontaneous
  Country: US (occurrence: US)
  Receive Date: 20241224
  Receipt Date: 20241226
  Transmission Date: 20250114
  Serious: No
  Sender: SANOFI AVENTIS
  Company Number: US-SA-2024SA378181

PATIENT
  Age: 74 Year
  Sex: Male

DRUGS (14)
  1. DUPIXENT [Suspect]
     Active Substance: DUPILUMAB
     Indication: Dermatitis atopic
     Dosage: 300 MG, QOW
     Route: 058
     Dates: start: 20240613, end: 20241213
  2. DUPIXENT [Suspect]
     Active Substance: DUPILUMAB
     Indication: Neurodermatitis
  3. AMLODIPINE BESYLATE [Concomitant]
     Active Substance: AMLODIPINE BESYLATE
  4. CLOBETASOL PROPIONATE [Concomitant]
     Active Substance: CLOBETASOL PROPIONATE
  5. CETIRIZINE HCL [Concomitant]
     Active Substance: CETIRIZINE HYDROCHLORIDE
  6. CHLORTHALIDONE [Concomitant]
     Active Substance: CHLORTHALIDONE
  7. CLOBETASOL [Concomitant]
     Active Substance: CLOBETASOL
  8. ELIQUIS [Concomitant]
     Active Substance: APIXABAN
  9. KETOCONAZOLE [Concomitant]
     Active Substance: KETOCONAZOLE
  10. LISINOPRIL [Concomitant]
     Active Substance: LISINOPRIL
  11. METOPROLOL [Concomitant]
     Active Substance: METOPROLOL
  12. TRIAMCINOLONE [Concomitant]
     Active Substance: TRIAMCINOLONE
  13. METOPROLOL SUCCINATE [Concomitant]
     Active Substance: METOPROLOL SUCCINATE
     Dosage: UNK
  14. CALCITRIOL [Concomitant]
     Active Substance: CALCITRIOL
     Dosage: UNK

REACTIONS (3)
  - Dermatitis atopic [Unknown]
  - Therapeutic response decreased [Unknown]
  - Rash [Not Recovered/Not Resolved]

NARRATIVE: CASE EVENT DATE: 20240101
